FAERS Safety Report 14715620 (Version 1)
Quarter: 2018Q2

REPORT INFORMATION
  Report Type: Spontaneous
  Country: PL (occurrence: PL)
  Receive Date: 20180404
  Receipt Date: 20180404
  Transmission Date: 20180711
  Serious: Yes (Other)
  Sender: FDA-Public Use
  Company Number: PL-ASTRAZENECA-2018SE38674

PATIENT
  Sex: Female
  Weight: 54 kg

DRUGS (4)
  1. ESOMEPRAZOLE MAGNESIUM. [Suspect]
     Active Substance: ESOMEPRAZOLE MAGNESIUM
     Indication: VOMITING
     Route: 048
     Dates: start: 20180209, end: 20180308
  2. METOCLOPRAMIDUM POLPHARMA [Concomitant]
     Indication: VOMITING
     Dosage: 3 TIMES DAILY
     Route: 048
     Dates: start: 20180102, end: 20180214
  3. POTASSIUM [Concomitant]
     Active Substance: POTASSIUM
     Indication: BLOOD POTASSIUM DECREASED
     Dosage: 3 TIMES DAILY
     Route: 048
     Dates: start: 20180102
  4. ESOMEPRAZOLE MAGNESIUM. [Suspect]
     Active Substance: ESOMEPRAZOLE MAGNESIUM
     Indication: GASTRIC ULCER
     Route: 048
     Dates: start: 20180209, end: 20180308

REACTIONS (24)
  - Bone pain [Recovering/Resolving]
  - Hordeolum [Recovered/Resolved]
  - Alopecia [Recovering/Resolving]
  - Hepatic pain [Recovering/Resolving]
  - Angina pectoris [Recovering/Resolving]
  - Rash [Recovering/Resolving]
  - Dyspnoea [Recovering/Resolving]
  - Vision blurred [Recovering/Resolving]
  - Regurgitation [Recovering/Resolving]
  - Skin maceration [Recovering/Resolving]
  - Myalgia [Recovering/Resolving]
  - Swelling face [Recovering/Resolving]
  - Sleep disorder [Recovering/Resolving]
  - Flatulence [Recovering/Resolving]
  - Hallucination [Recovering/Resolving]
  - Rhinitis allergic [Recovering/Resolving]
  - Arthralgia [Recovering/Resolving]
  - Pruritus [Recovering/Resolving]
  - Fatigue [Recovering/Resolving]
  - Pyrexia [Recovering/Resolving]
  - Grunting [Recovering/Resolving]
  - Dry mouth [Recovering/Resolving]
  - Oedema peripheral [Recovering/Resolving]
  - Hyperhidrosis [Recovering/Resolving]

NARRATIVE: CASE EVENT DATE: 20180216
